FAERS Safety Report 5951505-3 (Version None)
Quarter: 2008Q4

REPORT INFORMATION
  Report Type: 
  Country: None (occurrence: None)
  Receive Date: 20081113
  Receipt Date: 20081103
  Transmission Date: 20090506
  Serious: Yes (Death, Hospitalization)
  Sender: FDA-Public Use
  Company Number: DE-JNJFOC-20080903871

PATIENT
  Age: 78 Year
  Sex: Male

DRUGS (5)
  1. REMICADE [Suspect]
     Indication: PSORIASIS
     Route: 042
  2. BISOHEXAL [Concomitant]
  3. PANTOZOL [Concomitant]
  4. HUMALOG [Concomitant]
  5. TOPICAL PREPARATIONS [Concomitant]
     Indication: PSORIASIS

REACTIONS (1)
  - HEPATIC CIRRHOSIS [None]
